FAERS Safety Report 14389721 (Version 1)
Quarter: 2018Q1

REPORT INFORMATION
  Report Type: Spontaneous
  Country: US (occurrence: US)
  Receive Date: 20180115
  Receipt Date: 20180115
  Transmission Date: 20180509
  Serious: No
  Sender: FDA-Public Use
  Company Number: US-009507513-1801USA001462

PATIENT
  Age: 37 Year
  Sex: Female

DRUGS (1)
  1. NEXPLANON [Suspect]
     Active Substance: ETONOGESTREL
     Indication: CONTRACEPTION
     Dosage: 68MG, ONE ROD PER 3 YEARS
     Route: 059
     Dates: start: 20171120, end: 20171229

REACTIONS (1)
  - Foreign body reaction [Not Recovered/Not Resolved]

NARRATIVE: CASE EVENT DATE: 20171216
